FAERS Safety Report 8821029 (Version 1)
Quarter: 2012Q4

REPORT INFORMATION
  Report Type: 
  Country: PL (occurrence: PL)
  Receive Date: 20121002
  Receipt Date: 20121002
  Transmission Date: 20130627
  Serious: Yes (Hospitalization)
  Sender: FDA-Public Use
  Company Number: PL-WATSON-2012-16780

PATIENT
  Age: 68 Year
  Sex: Female

DRUGS (2)
  1. METOCLOPRAMIDE [Suspect]
     Indication: NAUSEA
     Dosage: 30 mg, daily
     Route: 065
  2. METOCLOPRAMIDE [Suspect]
     Indication: VOMITING

REACTIONS (1)
  - Methaemoglobinaemia [Unknown]
